FAERS Safety Report 6823831-7 (Version None)
Quarter: 2010Q3

REPORT INFORMATION
  Report Type: 
  Country: None (occurrence: None)
  Receive Date: 20100708
  Receipt Date: 20060905
  Transmission Date: 20110219
  Serious: No
  Sender: FDA-Public Use
  Company Number: US-PFIZER INC-2006110572

PATIENT
  Age: 39 Year
  Sex: Male
  Weight: 106.59 kg

DRUGS (3)
  1. CHANTIX [Suspect]
     Indication: SMOKING CESSATION THERAPY
     Route: 048
     Dates: start: 20060901
  2. VICODIN [Concomitant]
  3. LEVITRA [Concomitant]

REACTIONS (1)
  - DYSGEUSIA [None]
